FAERS Safety Report 9286556 (Version 1)
Quarter: 2013Q2

REPORT INFORMATION
  Report Type: Spontaneous
  Country: IT (occurrence: IT)
  Receive Date: 20130513
  Receipt Date: 20130513
  Transmission Date: 20140414
  Serious: Yes (Hospitalization)
  Sender: FDA-Public Use
  Company Number: IT-TEVA-403390ISR

PATIENT
  Age: 74 Year
  Sex: Male
  Weight: 75 kg

DRUGS (2)
  1. CARBOPLATINO TEVA [Suspect]
     Indication: LUNG NEOPLASM MALIGNANT
     Dosage: 430 MILLIGRAM DAILY;
     Route: 042
     Dates: start: 20130129, end: 20130129
  2. ETOPOSIDE TEVA [Suspect]
     Indication: LUNG NEOPLASM MALIGNANT
     Dosage: 140 MILLIGRAM DAILY;
     Route: 042
     Dates: start: 20130129, end: 20130130

REACTIONS (1)
  - Arrhythmia [Recovered/Resolved]
